FAERS Safety Report 14198836 (Version 8)
Quarter: 2021Q4

REPORT INFORMATION
  Report Type: Spontaneous
  Country: US (occurrence: US)
  Receive Date: 20171117
  Receipt Date: 20211228
  Transmission Date: 20220303
  Serious: Yes (Hospitalization)
  Sender: FDA-Public Use
  Company Number: US-PFIZER INC-2017492923

PATIENT
  Age: 80 Year
  Sex: Female
  Weight: 53.515 kg

DRUGS (2)
  1. XELJANZ XR [Suspect]
     Active Substance: TOFACITINIB CITRATE
     Indication: Rheumatoid arthritis
     Dosage: 11 MG, UNK
  2. XELJANZ XR [Suspect]
     Active Substance: TOFACITINIB CITRATE
     Dosage: 11 MG, 1X/DAY
     Route: 048

REACTIONS (5)
  - Herpes zoster [Not Recovered/Not Resolved]
  - Condition aggravated [Unknown]
  - Urinary tract infection [Unknown]
  - Memory impairment [Unknown]
  - Malaise [Unknown]

NARRATIVE: CASE EVENT DATE: 20180718
